FAERS Safety Report 9739498 (Version 2)
Quarter: 2014Q1

REPORT INFORMATION
  Report Type: Other
  Country: US (occurrence: US)
  Receive Date: 20131209
  Receipt Date: 20140319
  Transmission Date: 20141002
  Serious: Yes (Disabling, Other)
  Sender: FDA-Public Use
  Company Number: US-ACORDA-ACO_100645_2013

PATIENT
  Age: 47 Year
  Sex: Female

DRUGS (9)
  1. AMPYRA [Suspect]
     Indication: BALANCE DISORDER
     Dosage: UNK,UNK
     Route: 065
     Dates: start: 2012, end: 2013
  2. ZANAFLEX [Suspect]
     Indication: MUSCLE SPASTICITY
     Dosage: 4 MG, TID
     Route: 048
  3. PROVIGIL [Concomitant]
     Indication: MULTIPLE SCLEROSIS
     Dosage: 200 MG, 2 Q AM, 1 Q PM
     Route: 048
  4. SOLUMEDROL [Concomitant]
     Indication: MULTIPLE SCLEROSIS
     Dosage: 1 GM, MONTHLY
     Route: 042
  5. COPAXONE [Concomitant]
     Indication: MULTIPLE SCLEROSIS
     Dosage: 20 MG, QD
     Route: 058
  6. NEURONTIN [Concomitant]
     Indication: PAIN
     Dosage: 600 MG, QD
     Route: 048
  7. BACLOFEN [Concomitant]
     Indication: MUSCLE SPASTICITY
     Dosage: 20 MG, QID
     Route: 048
  8. DETROL LA [Concomitant]
     Indication: URINARY INCONTINENCE
     Dosage: 4 MG, QD
     Route: 048
  9. NORCO [Concomitant]
     Indication: PAIN
     Dosage: 10/325 MG Q 4 HRS, PRN
     Route: 048

REACTIONS (3)
  - Abasia [Not Recovered/Not Resolved]
  - Multiple sclerosis relapse [Unknown]
  - Drug ineffective [Unknown]
